FAERS Safety Report 23593461 (Version 1)
Quarter: 2024Q1

REPORT INFORMATION
  Report Type: Spontaneous
  Country: GB (occurrence: GB)
  Receive Date: 20240304
  Receipt Date: 20240304
  Transmission Date: 20240409
  Serious: Yes (Hospitalization)
  Sender: FDA-Public Use
  Company Number: GB-AMRYT PHARMACEUTICALS DAC-AEGR006847

PATIENT

DRUGS (1)
  1. METRELEPTIN [Suspect]
     Active Substance: METRELEPTIN
     Indication: Product used for unknown indication
     Dosage: 3 MILLIGRAM, QD
     Route: 058
     Dates: start: 202311

REACTIONS (4)
  - Lupus vasculitis [Unknown]
  - Hospitalisation [Unknown]
  - Malaise [Unknown]
  - Therapy cessation [Unknown]
